FAERS Safety Report 7186663-9 (Version None)
Quarter: 2010Q4

REPORT INFORMATION
  Report Type: 
  Country: None (occurrence: None)
  Receive Date: 20101222
  Receipt Date: 20100624
  Transmission Date: 20110411
  Serious: No
  Sender: FDA-Public Use
  Company Number: US-AMGEN-TCS420390

PATIENT

DRUGS (1)
  1. ENBREL [Suspect]
     Indication: RHEUMATOID ARTHRITIS
     Dosage: 50 MG, QWK
     Route: 058
     Dates: start: 20021210

REACTIONS (7)
  - CHRONIC SINUSITIS [None]
  - FATIGUE [None]
  - GENITAL RASH [None]
  - HEADACHE [None]
  - NAUSEA [None]
  - RETCHING [None]
  - UPPER RESPIRATORY TRACT INFECTION [None]
